FAERS Safety Report 17219022 (Version 1)
Quarter: 2020Q1

REPORT INFORMATION
  Report Type: Spontaneous
  Country: US (occurrence: US)
  Receive Date: 20191230
  Receipt Date: 20191230
  Transmission Date: 20200409
  Serious: Yes (Disabling)
  Sender: FDA-Public Use
  Company Number: None

PATIENT
  Age: 24 Year
  Sex: Female
  Weight: 90 kg

DRUGS (9)
  1. OLIVE LEAF [Concomitant]
  2. SERTRALINE [Concomitant]
     Active Substance: SERTRALINE HYDROCHLORIDE
  3. IRON [Concomitant]
     Active Substance: IRON
  4. ECHINACEA [Concomitant]
     Active Substance: ECHINACEA, UNSPECIFIED
  5. PRENATAL GUMMIES [Concomitant]
  6. CRANBERRY. [Concomitant]
     Active Substance: CRANBERRY
  7. PROBIOTICS [Concomitant]
     Active Substance: PROBIOTICS NOS
  8. ELDERBERRY TABLETS [Concomitant]
  9. LATUDA [Suspect]
     Active Substance: LURASIDONE HYDROCHLORIDE
     Indication: BIPOLAR I DISORDER
     Dosage: ?          QUANTITY:1 TABLET(S);?
     Route: 048
     Dates: start: 20190301, end: 20191019

REACTIONS (19)
  - Panic attack [None]
  - Terminal insomnia [None]
  - Weight increased [None]
  - Breast enlargement [None]
  - Anger [None]
  - Irritability [None]
  - Breast pain [None]
  - Crying [None]
  - Sleep disorder [None]
  - Feeling hot [None]
  - Urinary tract infection [None]
  - Blood urine present [None]
  - Anxiety [None]
  - Mood altered [None]
  - Hyperhidrosis [None]
  - Pregnancy [None]
  - Nausea [None]
  - Fatigue [None]
  - Fear [None]

NARRATIVE: CASE EVENT DATE: 20190501
